FAERS Safety Report 13006785 (Version 4)
Quarter: 2017Q2

REPORT INFORMATION
  Report Type: Report from Study
  Country: US (occurrence: US)
  Receive Date: 20161207
  Receipt Date: 20170404
  Transmission Date: 20170830
  Serious: Yes (Hospitalization)
  Sender: FDA-Public Use
  Company Number: US-PFIZER INC-2016556914

PATIENT
  Age: 13 Year
  Sex: Female
  Weight: 41 kg

DRUGS (18)
  1. VINCRISTINE SULFATE. [Suspect]
     Active Substance: VINCRISTINE SULFATE
     Indication: PRECURSOR B-LYMPHOBLASTIC LYMPHOMA
     Dosage: 2 MG, DAYS 5, 22
     Route: 042
     Dates: start: 20161014
  2. METHOTREXATE SODIUM. [Suspect]
     Active Substance: METHOTREXATE SODIUM
     Indication: PRECURSOR B-LYMPHOBLASTIC LYMPHOMA
     Dosage: 15 MG, DAYS 1, 8, 15, 22
     Route: 042
     Dates: start: 20160930
  3. ASPARAGINASE [Suspect]
     Active Substance: ASPARAGINASE
     Indication: B PRECURSOR TYPE ACUTE LEUKAEMIA
     Dosage: 3325 IU, DAY 15
     Route: 042
     Dates: start: 20161014
  4. MIDAZOLAM [Concomitant]
     Active Substance: MIDAZOLAM HYDROCHLORIDE
     Dosage: UNK
     Dates: end: 20161007
  5. CYTARABINE. [Suspect]
     Active Substance: CYTARABINE
     Indication: PRECURSOR B-LYMPHOBLASTIC LYMPHOMA
     Dosage: 100 MG, DAYS 1-4 AND DAYS 8-11
     Route: 058
     Dates: start: 20160930
  6. INCB018424 [Suspect]
     Active Substance: RUXOLITINIB
     Indication: PRECURSOR B-LYMPHOBLASTIC LYMPHOMA
     Dosage: TABLET, 50 MG, Q12HOURS
     Route: 048
     Dates: start: 20160930, end: 20161013
  7. HYDROCODONE BITARTRATE AND ACETAMINOPHEN [Concomitant]
     Active Substance: ACETAMINOPHEN\HYDROCODONE BITARTRATE
     Dosage: UNK
     Dates: start: 20160930, end: 20160930
  8. PROPOFOL. [Concomitant]
     Active Substance: PROPOFOL
     Dosage: UNK
     Dates: start: 20160930, end: 20160930
  9. KETAMINE [Concomitant]
     Active Substance: KETAMINE
     Dosage: UNK
     Dates: start: 20161015, end: 20161015
  10. CEPHAZOLIN [Concomitant]
     Active Substance: CEFAZOLIN
     Dosage: UNK
     Dates: start: 20160930, end: 20160930
  11. CYCLOPHOSPHAMIDE. [Suspect]
     Active Substance: CYCLOPHOSPHAMIDE
     Indication: PRECURSOR B-LYMPHOBLASTIC LYMPHOMA
     Dosage: 1340 MG, DAY 1, 29
     Route: 042
     Dates: start: 20160930
  12. MORPHINE [Concomitant]
     Active Substance: MORPHINE
     Dosage: UNK
     Dates: start: 20160930, end: 20161007
  13. ONDANSETRON [Concomitant]
     Active Substance: ONDANSETRON
     Dosage: UNK
     Dates: start: 20160930, end: 20160930
  14. OXYCODONE [Concomitant]
     Active Substance: OXYCODONE
     Dosage: UNK
     Dates: start: 20160930
  15. ACETAMINOPHEN. [Concomitant]
     Active Substance: ACETAMINOPHEN
     Dosage: UNK
  16. INCB018424 [Suspect]
     Active Substance: RUXOLITINIB
     Dosage: TABLET, 50 MG, Q12HOURS
     Route: 048
  17. MERCAPTOPURINE. [Suspect]
     Active Substance: MERCAPTOPURINE
     Indication: PRECURSOR B-LYMPHOBLASTIC LYMPHOMA
     Dosage: 75 MG, M-F, 100 MG S-S ON DAYS 1-14
     Route: 048
     Dates: start: 20160930
  18. DIPHENHYDRAMINE. [Concomitant]
     Active Substance: DIPHENHYDRAMINE
     Dosage: UNK
     Dates: start: 20160930

REACTIONS (6)
  - Blood immunoglobulin G decreased [Recovered/Resolved]
  - Pleural effusion [Not Recovered/Not Resolved]
  - Febrile neutropenia [Recovered/Resolved]
  - Pyomyositis [Recovered/Resolved]
  - Blood immunoglobulin A decreased [Unknown]
  - Pneumonia [Not Recovered/Not Resolved]

NARRATIVE: CASE EVENT DATE: 20161020
